FAERS Safety Report 4976293-9 (Version None)
Quarter: 2006Q2

REPORT INFORMATION
  Report Type: 
  Country: None (occurrence: None)
  Receive Date: 20060412
  Receipt Date: 20060331
  Transmission Date: 20061013
  Serious: Yes (Hospitalization, Other)
  Sender: FDA-Public Use
  Company Number: 2006037913

PATIENT
  Age: 29 Year
  Sex: Female
  Weight: 35.6 kg

DRUGS (19)
  1. ZYVOX [Suspect]
     Indication: STAPHYLOCOCCAL SEPSIS
     Dosage: 1200 MG (600 MG, 2 IN 1 D), INTRAVENOUS; SEE IMAGE
     Route: 042
     Dates: start: 20060217, end: 20060320
  2. ZYVOX [Suspect]
     Indication: STAPHYLOCOCCAL SEPSIS
     Dosage: 1200 MG (600 MG, 2 IN 1 D), INTRAVENOUS; SEE IMAGE
     Route: 042
     Dates: start: 20060316
  3. ZYVOX [Suspect]
     Indication: STAPHYLOCOCCAL SEPSIS
     Dosage: 1200 MG (600 MG, 2 IN 1 D), ORAL
     Route: 048
     Dates: start: 20060222, end: 20060315
  4. ZYVOX [Suspect]
     Indication: STAPHYLOCOCCAL SEPSIS
     Dosage: 1200 MG (600 MG, 2 IN 1 D), ORAL
     Route: 048
     Dates: start: 20060301
  5. WARFARIN SODIUM [Concomitant]
  6. BUFFERIN [Concomitant]
  7. SELIS (ENALAPRIL MALEATE) [Concomitant]
  8. LASIX [Concomitant]
  9. SPIRONOLACTONE [Concomitant]
  10. TRITEREN (TRIAMTERENE) [Concomitant]
  11. CARVEDILOL [Concomitant]
  12. RYTHMODAN R (DISOPYRAMIDE PHOSPHATE) [Concomitant]
  13. RABEPRAZOLE SODIUM [Concomitant]
  14. GASMOTIN (MOSAPRIDE CITRATE) [Concomitant]
  15. ALLOID G (SODIUM ALGINATE) [Concomitant]
  16. MAGNESIUM OXIDE (MAGNESIUM OXIDE) [Concomitant]
  17. GLUCONSAN K (POTASSIUM GLUCONATE) [Concomitant]
  18. BIOFERMIN R (STREPTOCOCCUS FAECALIS) [Concomitant]
  19. SILECE         (FLUNITRAZEPAM) [Concomitant]

REACTIONS (9)
  - ALOPECIA [None]
  - DISEASE RECURRENCE [None]
  - DRUG INEFFECTIVE [None]
  - HYPOAESTHESIA [None]
  - ILEUS PARALYTIC [None]
  - INTESTINAL OBSTRUCTION [None]
  - PANCYTOPENIA [None]
  - PYREXIA [None]
  - STAPHYLOCOCCAL SEPSIS [None]
